FAERS Safety Report 5814444-4 (Version None)
Quarter: 2008Q3

REPORT INFORMATION
  Report Type: 
  Country: None (occurrence: None)
  Receive Date: 20080718
  Receipt Date: 20080528
  Transmission Date: 20090109
  Serious: No
  Sender: FDA-Public Use
  Company Number: US-BAYER-200824336NA

PATIENT
  Age: 27 Year
  Sex: Female

DRUGS (1)
  1. MIRENA [Suspect]
     Indication: DRUG USE FOR UNKNOWN INDICATION
     Route: 015
     Dates: start: 20071001

REACTIONS (9)
  - ADNEXA UTERI PAIN [None]
  - AMENORRHOEA [None]
  - BACK PAIN [None]
  - MENSTRUATION IRREGULAR [None]
  - MUSCLE SPASMS [None]
  - MYALGIA [None]
  - PAIN IN EXTREMITY [None]
  - POST PROCEDURAL INFECTION [None]
  - VAGINAL ODOUR [None]
